FAERS Safety Report 6603922-6 (Version None)
Quarter: 2010Q1

REPORT INFORMATION
  Report Type: 
  Country: None (occurrence: None)
  Receive Date: 20100226
  Receipt Date: 20090317
  Transmission Date: 20100710
  Serious: No
  Sender: FDA-Public Use
  Company Number: A0773841A

PATIENT
  Age: 33 Year
  Sex: Male

DRUGS (1)
  1. LAMICTAL CD [Suspect]
     Indication: ANXIETY
     Route: 048
     Dates: start: 20080401, end: 20080501

REACTIONS (6)
  - EYE BURNS [None]
  - EYE PAIN [None]
  - OROPHARYNGEAL BLISTERING [None]
  - PHOTOSENSITIVITY REACTION [None]
  - RASH [None]
  - TEMPERATURE INTOLERANCE [None]
